FAERS Safety Report 4819990-8 (Version None)
Quarter: 2005Q4

REPORT INFORMATION
  Report Type: 
  Country: None (occurrence: None)
  Receive Date: 20051102
  Receipt Date: 20051021
  Transmission Date: 20060501
  Serious: Yes (Hospitalization)
  Sender: FDA-Public Use
  Company Number: 2005120863

PATIENT
  Age: 51 Year
  Sex: Male
  Weight: 114 kg

DRUGS (4)
  1. CELEBREX [Suspect]
     Indication: ARTHRALGIA
     Dosage: UNKNOWN (1 IN 1 D),ORAL
     Route: 048
     Dates: start: 20050809, end: 20050817
  2. NEXIUM [Concomitant]
  3. FELODIPINE [Concomitant]
  4. KARVEZIDE (HYDROCHLOROTHIAZIDE, IRBESARTAN) [Concomitant]

REACTIONS (5)
  - BLOOD GLUCOSE INCREASED [None]
  - CONDITION AGGRAVATED [None]
  - DRUG HYPERSENSITIVITY [None]
  - PSORIASIS [None]
  - TINEA PEDIS [None]
